FAERS Safety Report 7505820-2 (Version None)
Quarter: 2011Q2

REPORT INFORMATION
  Report Type: 
  Country: None (occurrence: None)
  Receive Date: 20110526
  Receipt Date: 20110513
  Transmission Date: 20111010
  Serious: Yes (Hospitalization)
  Sender: FDA-Public Use
  Company Number: JP-ELI_LILLY_AND_COMPANY-JP201105006194

PATIENT
  Sex: Male

DRUGS (4)
  1. HUMALOG [Suspect]
     Dosage: 3UNITS IN THE MORNING AND IN THE EVENIG
     Route: 058
  2. HUMALOG [Suspect]
     Dosage: 3UNITS IN THE MORNING AND IN THE EVENIG, 2UNITS IN THE DAY TIME
     Route: 058
  3. HUMALOG [Suspect]
     Dosage: UNK
     Route: 058
  4. LANTUS [Concomitant]
     Dosage: ABOUT 20UNITS

REACTIONS (3)
  - HOSPITALISATION [None]
  - HYPOGLYCAEMIA [None]
  - WEIGHT INCREASED [None]
